FAERS Safety Report 9686021 (Version 1)
Quarter: 2013Q4

REPORT INFORMATION
  Report Type: Spontaneous
  Country: US (occurrence: US)
  Receive Date: 20131113
  Receipt Date: 20131113
  Transmission Date: 20140711
  Serious: No
  Sender: FDA-Public Use
  Company Number: US-ALLERGAN-1301539US

PATIENT
  Sex: Female

DRUGS (4)
  1. COMBIGAN[R] [Suspect]
     Indication: GLAUCOMA
     Dosage: 2 GTT, BID
     Route: 047
     Dates: start: 20121218, end: 20130121
  2. LUMIGAN [Concomitant]
     Indication: GLAUCOMA
     Dosage: 2 GTT, QD
     Route: 047
  3. BISOPROLOL [Concomitant]
     Indication: HYPERTENSION
     Dosage: 625 MG, BID
     Route: 048
  4. LEVOXYL [Concomitant]
     Indication: HYPOTHYROIDISM
     Dosage: 0.075 MG, QD
     Route: 048

REACTIONS (1)
  - Dizziness [Recovered/Resolved]
